FAERS Safety Report 24722903 (Version 1)
Quarter: 2024Q4

REPORT INFORMATION
  Report Type: Spontaneous
  Country: IT (occurrence: None)
  Receive Date: 20241211
  Receipt Date: 20241211
  Transmission Date: 20250114
  Serious: Yes (Hospitalization, Other)
  Sender: ALEXION PHARMACEUTICALS
  Company Number: None

PATIENT
  Age: 34 Year

DRUGS (1)
  1. QUETIAPINE FUMARATE [Suspect]
     Active Substance: QUETIAPINE FUMARATE
     Dosage: 60 TABLETS OF SEROQUEL 100 MILLIGRAM, QD

REACTIONS (3)
  - Confusional state [Not Recovered/Not Resolved]
  - Suicide attempt [Unknown]
  - Intentional overdose [Not Recovered/Not Resolved]
